FAERS Safety Report 19276456 (Version 8)
Quarter: 2023Q1

REPORT INFORMATION
  Report Type: Spontaneous
  Country: CA (occurrence: CA)
  Receive Date: 20210519
  Receipt Date: 20230213
  Transmission Date: 20230417
  Serious: Yes (Hospitalization, Other)
  Sender: FDA-Public Use
  Company Number: CA-ANIPHARMA-2021-CA-000632

PATIENT
  Age: 75 Year
  Sex: Male

DRUGS (21)
  1. CANDESARTAN CILEXETIL [Suspect]
     Active Substance: CANDESARTAN CILEXETIL
     Indication: Cardiac failure
     Dosage: 4 MG DAILY / 2.5 MG DAILY / UNK
     Route: 048
     Dates: start: 20180920
  2. JARDIANCE [Suspect]
     Active Substance: EMPAGLIFLOZIN
     Dosage: 20 MG DAILY / UNK
     Route: 048
     Dates: start: 20180725, end: 20201106
  3. MIRAPEX [Suspect]
     Active Substance: PRAMIPEXOLE DIHYDROCHLORIDE
     Dosage: .4 MG QD
     Route: 048
     Dates: start: 20190716
  4. NITROGLYCERIN [Suspect]
     Active Substance: NITROGLYCERIN
     Dosage: 1 MG QD/ 1 MG QD / 1 DF DAILY
     Route: 061
  5. EZETIMIBE [Concomitant]
     Active Substance: EZETIMIBE
     Dosage: 10 MG DAILY
     Route: 048
     Dates: start: 20180418
  6. RIVAROXABAN [Concomitant]
     Active Substance: RIVAROXABAN
     Dosage: 15 MG DAILY
     Route: 048
     Dates: start: 20180214
  7. CRESTOR [Concomitant]
     Active Substance: ROSUVASTATIN CALCIUM
     Dosage: 20 MG DAILY
     Route: 048
     Dates: start: 20120524
  8. TRAZODONE [Concomitant]
     Active Substance: TRAZODONE HYDROCHLORIDE
     Dosage: 50 MG DAILY
     Route: 048
     Dates: start: 20180214
  9. TAMSULOSIN HYDROCHLORIDE [Suspect]
     Active Substance: TAMSULOSIN HYDROCHLORIDE
     Dosage: .4 MG QD / .4 MG QD
     Route: 048
  10. AMLODIPINE BESYLATE [Suspect]
     Active Substance: AMLODIPINE BESYLATE
     Dosage: 10 MG DAILY/UNK/1 MG DAILY
     Route: 048
     Dates: start: 20180214, end: 20201110
  11. EMPAGLIFLOZIN [Suspect]
     Active Substance: EMPAGLIFLOZIN
     Route: 065
  12. METOPROLOL [Suspect]
     Active Substance: METOPROLOL
     Dosage: 200 MG DAILY/4 MG UNK
     Route: 048
     Dates: start: 20180103
  13. PRAMIPEXOLE DIHYDROCHLORIDE [Suspect]
     Active Substance: PRAMIPEXOLE DIHYDROCHLORIDE
     Dosage: UNK / .4 MG QD / .4 MG QD
     Route: 048
  14. METOPROLOL FUMARATE [Suspect]
     Active Substance: METOPROLOL FUMARATE
     Dosage: 4 MG QD / 200 MG QD / UNK
     Route: 048
     Dates: start: 20180803
  15. CARDIZEM [Suspect]
     Active Substance: DILTIAZEM HYDROCHLORIDE
     Dosage: 2.5 MG QD / 200 MG QD / 2.5 MG QD
     Route: 048
     Dates: start: 20181229
  16. BICALUTAMIDE [Concomitant]
     Active Substance: BICALUTAMIDE
     Dosage: 50 MG DAILY
  17. CLOPIDOGREL [Concomitant]
     Active Substance: CLOPIDOGREL BISULFATE
     Dosage: 75 MG DAILY
     Route: 048
     Dates: start: 20180404
  18. AMIODARONE [Suspect]
     Active Substance: AMIODARONE
     Dosage: 200 MG DAILY
     Route: 048
     Dates: start: 20180214, end: 20201110
  19. DILTIAZEM [Suspect]
     Active Substance: DILTIAZEM
     Dosage: 2.5 MG DAILY / 200 MG DAILY /  60 MG QD / 60 MG QD / 200 MG QD / 2.5 MG QD / 2.5 MG QD
     Route: 048
     Dates: start: 20181219
  20. FLOMAX [Suspect]
     Active Substance: TAMSULOSIN HYDROCHLORIDE
     Dosage: .4 MG DAILY
     Route: 048
     Dates: start: 20110811
  21. FUROSEMIDE [Suspect]
     Active Substance: FUROSEMIDE
     Dosage: 20 MG DAILY / 200 MG DAILY
     Route: 048
     Dates: start: 20060215

REACTIONS (4)
  - Adrenal insufficiency [Not Recovered/Not Resolved]
  - Hyperthyroidism [Not Recovered/Not Resolved]
  - Hypotension [Recovered/Resolved]
  - Troponin increased [Not Recovered/Not Resolved]

NARRATIVE: CASE EVENT DATE: 20201101
